FAERS Safety Report 19958498 (Version 3)
Quarter: 2022Q4

REPORT INFORMATION
  Report Type: Spontaneous
  Country: IN (occurrence: IN)
  Receive Date: 20211015
  Receipt Date: 20221116
  Transmission Date: 20230113
  Serious: Yes (Other)
  Sender: FDA-Public Use
  Company Number: IN-PFIZER INC-2019422506

PATIENT
  Age: 60 Year
  Sex: Female

DRUGS (4)
  1. AROMASIN [Suspect]
     Active Substance: EXEMESTANE
     Indication: Breast cancer metastatic
     Dosage: 25 MG, 1X/DAY
     Route: 048
     Dates: start: 20190905
  2. AROMASIN [Suspect]
     Active Substance: EXEMESTANE
     Dosage: 25 MG, 1X/DAY
     Route: 048
  3. LEVOFLOXACIN [Concomitant]
     Active Substance: LEVOFLOXACIN
     Dosage: 500 MG, 2X/DAY
  4. ZEROCLOT [Concomitant]
     Dosage: UNK UNK, 2X/DAY

REACTIONS (12)
  - Haemorrhage [Unknown]
  - Malaise [Unknown]
  - Spinal osteoarthritis [Unknown]
  - Intervertebral disc protrusion [Unknown]
  - Spinal stenosis [Unknown]
  - Dyschezia [Unknown]
  - Motor dysfunction [Unknown]
  - Bladder disorder [Unknown]
  - Functional gastrointestinal disorder [Recovered/Resolved]
  - Product prescribing issue [Unknown]
  - Scar [Unknown]
  - Breast fibrosis [Unknown]
